FAERS Safety Report 24915805 (Version 1)
Quarter: 2025Q1

REPORT INFORMATION
  Report Type: Report from Study
  Country: EG (occurrence: EG)
  Receive Date: 20250203
  Receipt Date: 20250203
  Transmission Date: 20250409
  Serious: Yes (Other)
  Sender: EMD SERONO INC
  Company Number: EG-Merck Healthcare KGaA-2025004997

PATIENT
  Age: 29 Year
  Sex: Female

DRUGS (2)
  1. REBIF [Suspect]
     Active Substance: INTERFERON BETA-1A
     Indication: Multiple sclerosis
     Dates: start: 20240815
  2. REBIF [Suspect]
     Active Substance: INTERFERON BETA-1A

REACTIONS (2)
  - Abortion [Recovered/Resolved]
  - Maternal exposure timing unspecified [Recovered/Resolved]

NARRATIVE: CASE EVENT DATE: 20240901
